FAERS Safety Report 7007391-6 (Version None)
Quarter: 2010Q3

REPORT INFORMATION
  Report Type: 
  Country: None (occurrence: None)
  Receive Date: 20100922
  Receipt Date: 20100910
  Transmission Date: 20110219
  Serious: Yes (Hospitalization)
  Sender: FDA-Public Use
  Company Number: CA-PFIZER INC-2005170973

PATIENT
  Age: 53 Year
  Sex: Female
  Weight: 59.4 kg

DRUGS (11)
  1. SUNITINIB MALATE [Suspect]
     Indication: RENAL CELL CARCINOMA
     Dosage: 50 MG, 1X/DAY
     Route: 048
     Dates: start: 20051102, end: 20051129
  2. PANTOPRAZOLE [Concomitant]
     Dosage: UNK
     Route: 048
     Dates: start: 20040801
  3. RIVOTRIL [Concomitant]
     Dosage: UNK
     Route: 048
     Dates: start: 20051011
  4. EFFEXOR [Concomitant]
     Dosage: UNK
     Route: 048
     Dates: start: 20051020
  5. MAGIC MOUTHWASH [Concomitant]
     Dosage: UNK
     Route: 048
     Dates: start: 20051115, end: 20051202
  6. PROCHLORPERAZINE [Concomitant]
     Dosage: UNK
     Route: 048
     Dates: start: 20051124, end: 20051213
  7. LOPERAMIDE HYDROCHLORIDE [Concomitant]
     Dosage: UNK
     Route: 048
     Dates: start: 20051121
  8. MORPHINE [Concomitant]
     Dosage: UNK
     Route: 048
     Dates: start: 20051202, end: 20051205
  9. MAALOX [Concomitant]
     Dosage: UNK
     Route: 048
     Dates: start: 20051202
  10. GRAVOL TAB [Concomitant]
     Dosage: UNK
     Route: 048
     Dates: start: 20051213
  11. SECARIS [Concomitant]
     Dosage: UNK
     Route: 048
     Dates: start: 20051130

REACTIONS (1)
  - PNEUMOTHORAX [None]
